FAERS Safety Report 21312327 (Version 1)
Quarter: 2022Q3

REPORT INFORMATION
  Report Type: Spontaneous
  Country: US (occurrence: None)
  Receive Date: 20220909
  Receipt Date: 20220909
  Transmission Date: 20221027
  Serious: No
  Sender: FDA-Public Use
  Company Number: US-ARIS GLOBAL-202205-0911

PATIENT
  Sex: Female

DRUGS (26)
  1. OXERVATE [Suspect]
     Active Substance: CENEGERMIN-BKBJ
     Indication: Neurotrophic keratopathy
     Route: 047
     Dates: start: 20220510
  2. MYCOPHENOLATE MOFETIL [Concomitant]
     Active Substance: MYCOPHENOLATE MOFETIL
  3. OMEPRAZOLE [Concomitant]
     Active Substance: OMEPRAZOLE
  4. REFRESH P.M. [Concomitant]
     Active Substance: MINERAL OIL\PETROLATUM
     Dosage: 42.5-57.3%
  5. SYSTANE (HYPROMELLOSE 2910 (4000 MPA.S)) [Concomitant]
     Active Substance: HYPROMELLOSE 2910 (4000 MPA.S)
     Dosage: 0.3 %-0.4%
  6. RETAINE MGD [Concomitant]
     Active Substance: LIGHT MINERAL OIL\MINERAL OIL
     Dosage: 0.5 %-0.5%
  7. REFRESH CELLUVISC [Concomitant]
     Active Substance: CARBOXYMETHYLCELLULOSE SODIUM
     Dosage: DROPS GEL
  8. XIIDRA [Concomitant]
     Active Substance: LIFITEGRAST
  9. VITAMIN A AND D [Concomitant]
     Active Substance: LANOLIN\PETROLATUM
  10. LOTEMAX [Concomitant]
     Active Substance: LOTEPREDNOL ETABONATE
     Dosage: DROPS SUSPENSION
  11. CALCIUM [Concomitant]
     Active Substance: CALCIUM
     Dosage: 500(1250)
  12. MULTIVITAMIN 50 PLUS [Concomitant]
  13. VITAMIN D3 [Concomitant]
     Active Substance: CHOLECALCIFEROL
  14. ATORVASTATIN CALCIUM [Concomitant]
     Active Substance: ATORVASTATIN CALCIUM
  15. FENOFIBRATE [Concomitant]
     Active Substance: FENOFIBRATE
  16. CELEXA [Concomitant]
     Active Substance: CITALOPRAM HYDROBROMIDE
  17. LEVOTHYROXINE SODIUM [Concomitant]
     Active Substance: LEVOTHYROXINE SODIUM
  18. ZINC [Concomitant]
     Active Substance: ZINC
     Dosage: 220 50(220) MG
  19. NABUMETONE [Concomitant]
     Active Substance: NABUMETONE
  20. VITAMIN B12 [Concomitant]
     Active Substance: CYANOCOBALAMIN
  21. LISINOPRIL [Concomitant]
     Active Substance: LISINOPRIL
  22. METFORMIN HYDROCHLORIDE [Concomitant]
     Active Substance: METFORMIN HYDROCHLORIDE
  23. VITAMIN C [Concomitant]
     Active Substance: ASCORBIC ACID
  24. BRIMONIDINE [Concomitant]
     Active Substance: BRIMONIDINE TARTRATE
  25. FUROSEMIDE [Concomitant]
     Active Substance: FUROSEMIDE
  26. IBUPROFEN [Concomitant]
     Active Substance: IBUPROFEN

REACTIONS (7)
  - Eyelid pain [Unknown]
  - Eyelid irritation [Unknown]
  - Vision blurred [Unknown]
  - Photophobia [Unknown]
  - Eye swelling [Unknown]
  - Ocular discomfort [Unknown]
  - Eye pain [Unknown]
